FAERS Safety Report 17162579 (Version 1)
Quarter: 2019Q4

REPORT INFORMATION
  Report Type: Report from Study
  Country: JP (occurrence: JP)
  Receive Date: 20191217
  Receipt Date: 20191217
  Transmission Date: 20200122
  Serious: Yes (Death, Other)
  Sender: FDA-Public Use
  Company Number: JP-ROCHE-2492283

PATIENT

DRUGS (4)
  1. RITUXIMAB. [Suspect]
     Active Substance: RITUXIMAB
     Indication: RENAL TRANSPLANT
     Dosage: MEAN TOTAL DOSE+/-SD WAS 324.6+/-155.3 MG.
     Route: 041
  2. RITUXIMAB. [Suspect]
     Active Substance: RITUXIMAB
     Indication: PROPHYLAXIS AGAINST TRANSPLANT REJECTION
  3. BASILIXIMAB [Suspect]
     Active Substance: BASILIXIMAB
     Indication: PROPHYLAXIS AGAINST TRANSPLANT REJECTION
     Route: 065
  4. BASILIXIMAB [Suspect]
     Active Substance: BASILIXIMAB
     Indication: PROPHYLAXIS AGAINST TRANSPLANT REJECTION

REACTIONS (28)
  - Hypoglycaemia [Unknown]
  - Vomiting [Unknown]
  - Vesicoureteric reflux [Unknown]
  - Off label use [Unknown]
  - Pruritus [Unknown]
  - Malaise [Unknown]
  - Chest discomfort [Unknown]
  - Dyshidrotic eczema [Unknown]
  - Acute coronary syndrome [Fatal]
  - Chronic kidney disease [Unknown]
  - Leukopenia [Unknown]
  - Diarrhoea [Unknown]
  - Nausea [Unknown]
  - Chest pain [Unknown]
  - Pyrexia [Unknown]
  - Hepatic function abnormal [Unknown]
  - Product use in unapproved indication [Unknown]
  - Spinal compression fracture [Unknown]
  - Liver disorder [Unknown]
  - Headache [Unknown]
  - Neutropenia [Unknown]
  - Thrombocytopenia [Unknown]
  - Anaemia [Unknown]
  - Palpitations [Unknown]
  - Cytomegalovirus infection [Unknown]
  - Constipation [Unknown]
  - Hypercalcaemia [Unknown]
  - Rash [Unknown]
